FAERS Safety Report 6955164-2 (Version None)
Quarter: 2010Q3

REPORT INFORMATION
  Report Type: 
  Country: None (occurrence: None)
  Receive Date: 20100830
  Receipt Date: 20100823
  Transmission Date: 20110219
  Serious: Yes (Other)
  Sender: FDA-Public Use
  Company Number: TEVA-245910ISR

PATIENT
  Age: 50 Year
  Sex: Male

DRUGS (4)
  1. CISPLATIN [Suspect]
     Indication: SMALL CELL LUNG CANCER STAGE UNSPECIFIED
  2. DEXAMETHASONE [Suspect]
     Route: 042
  3. DEXAMETHASONE [Suspect]
     Route: 042
  4. ETOPOSIDE [Concomitant]
     Route: 042

REACTIONS (1)
  - AORTIC THROMBOSIS [None]
